FAERS Safety Report 19078393 (Version 1)
Quarter: 2021Q1

REPORT INFORMATION
  Report Type: Spontaneous
  Country: US (occurrence: US)
  Receive Date: 20210331
  Receipt Date: 20210331
  Transmission Date: 20210420
  Serious: Yes (Hospitalization)
  Sender: FDA-Public Use
  Company Number: None

PATIENT
  Age: 45 Year
  Sex: Male
  Weight: 136 kg

DRUGS (8)
  1. BICTEGRAVIR?EMTRICITAB?TENOFOVIR (BIKTARVY) 50?200?25 MG PER TABLET [Concomitant]
  2. OXYCODONE 5 MG IR TABLET [Concomitant]
  3. OSELTAMIVIR 75 MG CAPSULE [Concomitant]
  4. GABAPENTIN 300 MG CAPSULE [Concomitant]
     Active Substance: GABAPENTIN
  5. ZOLPIDEM 10 MG TABLET [Concomitant]
  6. YESCARTA [Suspect]
     Active Substance: AXICABTAGENE CILOLEUCEL
     Indication: DIFFUSE LARGE B-CELL LYMPHOMA
     Dosage: ?          OTHER FREQUENCY:ONCE;?
     Route: 042
     Dates: start: 20200528, end: 20200528
  7. ALPRAZOLAM. [Concomitant]
     Active Substance: ALPRAZOLAM
  8. CHOLECALCIFEROL (D 1000) 1000 UNITS CAPSULE [Concomitant]

REACTIONS (6)
  - Tachycardia [None]
  - Infection [None]
  - Chills [None]
  - Pyrexia [None]
  - Myalgia [None]
  - Diarrhoea [None]

NARRATIVE: CASE EVENT DATE: 20200603
